FAERS Safety Report 8069815-5 (Version None)
Quarter: 2012Q1

REPORT INFORMATION
  Report Type: 
  Country: None (occurrence: None)
  Receive Date: 20120125
  Receipt Date: 20120125
  Transmission Date: 20120608
  Serious: Yes (Other)
  Sender: FDA-Public Use
  Company Number: None

PATIENT
  Age: 34 Year
  Sex: Female
  Weight: 53.523 kg

DRUGS (14)
  1. SIROLIMUS [Concomitant]
     Indication: KIDNEY TRANSPLANT REJECTION
     Dosage: 2MG
     Route: 048
  2. HYDRALAZINE HCL [Concomitant]
     Route: 048
  3. PREDNISONE TAB [Concomitant]
     Route: 048
  4. NIFEDIPINE [Concomitant]
     Route: 048
  5. DOCUSATE SODIUM [Concomitant]
     Route: 048
  6. BISACODYL [Concomitant]
     Route: 048
  7. TACROLIMUS [Suspect]
     Indication: KIDNEY TRANSPLANT REJECTION
     Dosage: 1MG, THEN DEC'D TO 0.5MG
     Route: 048
  8. MICAFUNGIN SODIUM [Concomitant]
     Route: 042
  9. PANTOPRAZOLE [Concomitant]
     Route: 048
  10. PRORENAL [Concomitant]
     Route: 048
  11. LEVETIRACETAM [Concomitant]
     Route: 048
  12. MORPHINE [Concomitant]
     Route: 048
  13. LISINOPRIL [Concomitant]
     Route: 048
  14. LABETELOL [Concomitant]
     Route: 048

REACTIONS (12)
  - THROMBOCYTOPENIC PURPURA [None]
  - CARDIO-RESPIRATORY ARREST [None]
  - POST PROCEDURAL COMPLICATION [None]
  - VOMITING [None]
  - FATIGUE [None]
  - DYSPNOEA [None]
  - NAUSEA [None]
  - URINARY TRACT INFECTION [None]
  - PRODUCTIVE COUGH [None]
  - RENAL FAILURE ACUTE [None]
  - DRUG LEVEL INCREASED [None]
  - PNEUMONIA [None]
